FAERS Safety Report 23426249 (Version 3)
Quarter: 2024Q1

REPORT INFORMATION
  Report Type: Spontaneous
  Country: JP (occurrence: JP)
  Receive Date: 20240122
  Receipt Date: 20240212
  Transmission Date: 20240410
  Serious: Yes (Other)
  Sender: FDA-Public Use
  Company Number: JP-JUBILANT CADISTA PHARMACEUTICALS-2023JP001711

PATIENT
  Age: 7 Decade
  Sex: Male
  Weight: 64 kg

DRUGS (22)
  1. LEVOFLOXACIN [Interacting]
     Active Substance: LEVOFLOXACIN
     Indication: Brain abscess
     Dosage: 1 DOSAGE FORM, ONCE PER DAY (AFTER DINNER)
     Route: 048
  2. METHADONE HYDROCHLORIDE [Interacting]
     Active Substance: METHADONE HYDROCHLORIDE
     Indication: Abdominal pain
     Dosage: 3 DOSAGE FORM, 3 TIMES PER DAY (8:00 A.M., 2:00P.M., AND 9:00P.M)
     Route: 048
  3. METHADONE HYDROCHLORIDE [Interacting]
     Active Substance: METHADONE HYDROCHLORIDE
     Indication: Cancer pain
  4. OXYCODONE HYDROCHLORIDE [Concomitant]
     Active Substance: OXYCODONE HYDROCHLORIDE
     Indication: Abdominal pain
     Dosage: 40 MG PER DAY
  5. OXYCODONE HYDROCHLORIDE [Concomitant]
     Active Substance: OXYCODONE HYDROCHLORIDE
     Indication: Cancer pain
     Dosage: THE DOSE HAD TO BE ADJUSTED TO 100 MG/DAY BY DAY 10
  6. OXYCODONE HYDROCHLORIDE [Concomitant]
     Active Substance: OXYCODONE HYDROCHLORIDE
     Dosage: THE DOSE WAS GRADUALLY REDUCED AND ADMINISTRATION WAS COMPLETED ON DAY 21
  7. OXYCODONE HYDROCHLORIDE [Concomitant]
     Active Substance: OXYCODONE HYDROCHLORIDE
     Dosage: THE DOSE WAS GRADUALLY REDUCED AND ADMINISTRATION WAS COMPLETED ON DAY 21
  8. OXYCODONE HYDROCHLORIDE [Concomitant]
     Active Substance: OXYCODONE HYDROCHLORIDE
     Dosage: THE DOSE WAS GRADUALLY REDUCED AND ADMINISTRATION WAS COMPLETED ON DAY 21
  9. KETAMINE HYDROCHLORIDE [Concomitant]
     Active Substance: KETAMINE HYDROCHLORIDE
     Indication: Abdominal pain
     Dosage: 30 MG PER DAY
  10. KETAMINE HYDROCHLORIDE [Concomitant]
     Active Substance: KETAMINE HYDROCHLORIDE
     Dosage: 15 MG PER DAY (ON DAY 14)
  11. DAPAGLIFLOZIN [Concomitant]
     Active Substance: DAPAGLIFLOZIN
     Indication: Product used for unknown indication
     Dosage: 1 TABLET, ONCE A DAY, AFTER BREAKFAST
  12. MIROGABALIN BESYLATE [Concomitant]
     Active Substance: MIROGABALIN BESYLATE
     Indication: Product used for unknown indication
     Dosage: 2 TABLETS, TWICE A DAY, AFTER BREAKFAST AND DINNER
  13. MIROGABALIN BESYLATE [Concomitant]
     Active Substance: MIROGABALIN BESYLATE
     Indication: Product used for unknown indication
     Dosage: 2 TABLETS, TWICE A DAY, AFTER BREAKFAST AND DINNER
  14. VONOPRAZAN FUMARATE [Concomitant]
     Active Substance: VONOPRAZAN FUMARATE
     Indication: Product used for unknown indication
     Dosage: 1 TABLET, ONCE A DAY, AFTER BREAKFAST
     Route: 048
  15. CLOSTRIDIUM BUTYRICUM SPORES STRAIN M-55 [Concomitant]
     Active Substance: CLOSTRIDIUM BUTYRICUM SPORES STRAIN M-55
     Indication: Product used for unknown indication
     Dosage: 3 TABLETS, THREE TIMES A DAY, AFTER EACH MEAL
  16. NALDEMEDINE TOSYLATE [Concomitant]
     Active Substance: NALDEMEDINE TOSYLATE
     Indication: Product used for unknown indication
     Dosage: 1 TABLET, ONCE A DAY, AFTER BREAKFAST
  17. LINACLOTIDE [Concomitant]
     Active Substance: LINACLOTIDE
     Indication: Product used for unknown indication
     Dosage: 1 TABLET, ONCE A DAY, BEFORE BREAKFAST
  18. SILODOSIN [Concomitant]
     Active Substance: SILODOSIN
     Indication: Product used for unknown indication
     Dosage: 2 TABLETS, TWICE A DAY, AFTER BREAKFAST AND DINNER
  19. ACETAMINOPHEN [Concomitant]
     Active Substance: ACETAMINOPHEN
     Indication: Product used for unknown indication
     Dosage: 4 TABLETS, FOUR TIMES A DAY, AFTER EACH MEAL AND AT BEDTIME
  20. LACTULOSE [Concomitant]
     Active Substance: LACTULOSE
     Indication: Product used for unknown indication
     Dosage: AFTER BREAKFAST AND DINNER
     Route: 048
  21. ELECTROLYTE SOLUTIONS [ELECTROLYTES NOS] [Concomitant]
     Indication: Product used for unknown indication
     Dosage: 500ML / DAY (ADMINISTRATION WAS COMPLETED ON DAY 15)
  22. DEXAMETHASONE SODIUM PHOSPHATE [Concomitant]
     Active Substance: DEXAMETHASONE PHOSPHATE\DEXAMETHASONE SODIUM PHOSPHATE
     Indication: Product used for unknown indication
     Dosage: ADMINISTRATION WAS COMPLETED ON DAY 16 OF HOSPITALIZATION

REACTIONS (2)
  - Electrocardiogram QT prolonged [Recovering/Resolving]
  - Drug interaction [Recovering/Resolving]
